FAERS Safety Report 7283937-8 (Version None)
Quarter: 2011Q1

REPORT INFORMATION
  Report Type: 
  Country: None (occurrence: None)
  Receive Date: 20110209
  Receipt Date: 20110201
  Transmission Date: 20110831
  Serious: Yes (Life-Threatening, Hospitalization)
  Sender: FDA-Public Use
  Company Number: US-CELGENEUS-163-C5013-10071690

PATIENT
  Sex: Male
  Weight: 113.05 kg

DRUGS (32)
  1. PREDNISONE [Suspect]
     Indication: PROSTATE CANCER
     Route: 065
     Dates: start: 20100518
  2. PRIMAXIN [Concomitant]
     Indication: PSEUDOMONAS INFECTION
     Route: 065
     Dates: start: 20100101
  3. PRIMAXIN [Concomitant]
     Indication: PROTEUS INFECTION
  4. DOCETAXEL [Suspect]
     Indication: PROSTATE CANCER
     Route: 065
     Dates: start: 20100518
  5. LORTAB [Concomitant]
     Dosage: 5/500
     Route: 065
  6. IMDUR [Concomitant]
     Route: 048
  7. LANTUS [Concomitant]
     Dosage: 50 UNITS
     Route: 058
     Dates: start: 20080801
  8. MYCOSTATIN [Concomitant]
     Indication: RASH
     Route: 061
     Dates: start: 20100528
  9. CIPRO [Concomitant]
     Indication: PSEUDOMONAS INFECTION
     Route: 065
     Dates: start: 20100101
  10. DEMADEX [Concomitant]
  11. HUMALOG [Concomitant]
     Dosage: SLIDING SCALE
     Route: 058
     Dates: start: 20080801
  12. IMDUR [Concomitant]
     Indication: HYPERTENSION
     Route: 048
     Dates: start: 19900101
  13. LUPRON [Concomitant]
     Indication: HORMONE SUPPRESSION THERAPY
     Route: 030
     Dates: start: 20090201
  14. ATENOLOL [Concomitant]
     Indication: HYPERTENSION
     Route: 048
     Dates: start: 19900101
  15. ASPIRIN [Concomitant]
     Indication: THROMBOSIS PROPHYLAXIS
     Route: 048
     Dates: start: 19900101
  16. WARFARIN [Concomitant]
     Indication: THROMBOSIS PROPHYLAXIS
     Route: 048
     Dates: start: 20061001
  17. CC-5013\PLACEBO [Suspect]
     Indication: PROSTATE CANCER
     Route: 048
     Dates: start: 20100518
  18. CC-5013\PLACEBO [Suspect]
     Route: 048
     Dates: start: 20100707, end: 20100713
  19. LOTRIMIN [Concomitant]
     Indication: RASH
     Route: 061
     Dates: start: 20100526, end: 20100528
  20. DOCETAXEL [Suspect]
     Route: 065
     Dates: start: 20100707, end: 20100713
  21. PREDNISONE [Suspect]
     Route: 065
     Dates: start: 20100707, end: 20100713
  22. AMLODIPINE [Concomitant]
     Indication: HYPERTENSION
     Route: 048
     Dates: start: 19900101
  23. DEMADEX [Concomitant]
     Indication: HYPERTENSION
     Route: 065
     Dates: start: 19900101
  24. DIFLUCAN [Concomitant]
     Indication: RASH
     Route: 048
     Dates: start: 20100528
  25. FLOMAX [Concomitant]
     Route: 048
     Dates: start: 20020201
  26. WARFARIN [Concomitant]
     Route: 065
  27. VANCOMYCIN [Concomitant]
     Indication: PSEUDOMONAS INFECTION
     Route: 065
     Dates: start: 20100101
  28. VANCOMYCIN [Concomitant]
     Indication: PROTEUS INFECTION
  29. CIPRO [Concomitant]
     Indication: PROTEUS INFECTION
  30. NEULASTA [Concomitant]
     Route: 065
  31. IMIPENEM [Concomitant]
     Route: 065
     Dates: start: 20100701
  32. PRAVASTATIN [Concomitant]
     Route: 065

REACTIONS (3)
  - FEBRILE NEUTROPENIA [None]
  - GASTROINTESTINAL PERFORATION [None]
  - PERITONITIS [None]
